FAERS Safety Report 8782707 (Version 1)
Quarter: 2012Q4

REPORT INFORMATION
  Report Type: Report from Study
  Country: US (occurrence: US)
  Receive Date: 20120913
  Receipt Date: 20120913
  Transmission Date: 20130627
  Serious: No
  Sender: FDA-Public Use
  Company Number: US-VERTEX PHARMACEUTICAL INC.-AE-2012-010132

PATIENT
  Age: 57 Year
  Sex: Male
  Weight: 95.46 kg

DRUGS (12)
  1. INCIVEK [Suspect]
     Indication: HEPATITIS C
     Route: 048
  2. PEGASYS [Concomitant]
     Indication: HEPATITIS C
  3. RIBAVIRIN [Concomitant]
     Indication: HEPATITIS C
  4. LISINOPRIL [Concomitant]
  5. VITAMIN C + E CAP COMBO [Concomitant]
  6. OXYCODONE [Concomitant]
  7. CALCIUM+D [Concomitant]
  8. VITB12 ER [Concomitant]
  9. MILK THISTLE CAP [Concomitant]
  10. CHOLESTEROL CAP FIGHTER [Concomitant]
  11. OMEGA3 [Concomitant]
  12. VIT D HIGH CAP POTENCY [Concomitant]

REACTIONS (2)
  - Fatigue [Unknown]
  - Vomiting [Unknown]
